FAERS Safety Report 11929825 (Version 1)
Quarter: 2016Q1

REPORT INFORMATION
  Report Type: Spontaneous
  Country: NL (occurrence: NL)
  Receive Date: 20160120
  Receipt Date: 20160120
  Transmission Date: 20160526
  Serious: Yes (Hospitalization, Disabling)
  Sender: FDA-Public Use
  Company Number: NL-ROCHE-427559

PATIENT
  Age: 66 Year
  Sex: Male

DRUGS (8)
  1. BISOPROLOL FUMARATE. [Concomitant]
     Active Substance: BISOPROLOL FUMARATE
     Dosage: DOSAGE REGIMEN REPORTED AS TIMES PER 1 DF.
     Route: 048
  2. IRINOTECAN [Concomitant]
     Active Substance: IRINOTECAN
     Route: 065
  3. FLUOROURACIL. [Concomitant]
     Active Substance: FLUOROURACIL
     Route: 065
  4. TRITACE [Concomitant]
     Active Substance: RAMIPRIL
     Route: 048
  5. PARIET [Concomitant]
     Active Substance: RABEPRAZOLE SODIUM
     Dosage: DOSAGE REGIMEN REPORTED AS TIMES PER 1 DF.  STRENGHT/FORMULATION REPORTED AS 10 MG TABLET MSR.
     Route: 048
  6. FOLINIC ACID [Concomitant]
     Active Substance: LEUCOVORIN
     Route: 065
  7. SINTROM [Interacting]
     Active Substance: ACENOCOUMAROL
     Indication: COLORECTAL CANCER METASTATIC
     Dosage: DOSAGE REGIMEN REPORTED AS PRESCRIBED.
     Route: 048
  8. AVASTIN [Suspect]
     Active Substance: BEVACIZUMAB
     Indication: COLORECTAL CANCER METASTATIC
     Dosage: DOSAGE REGIMEN REPORTED AS TIMES PER 1 DF. FORM STRENGTH=25 MG/ML
     Route: 042

REACTIONS (2)
  - Spinal cord haematoma [Unknown]
  - Drug interaction [Unknown]

NARRATIVE: CASE EVENT DATE: 20051008
